FAERS Safety Report 6234381-3 (Version None)
Quarter: 2009Q2

REPORT INFORMATION
  Report Type: 
  Country: None (occurrence: None)
  Receive Date: 20090615
  Receipt Date: 20090501
  Transmission Date: 20091009
  Serious: No
  Sender: FDA-Public Use
  Company Number: DSA_33590_2009

PATIENT
  Sex: Female

DRUGS (17)
  1. XENAZINE [Suspect]
     Indication: HUNTINGTON'S CHOREA
     Dosage: (12.5 MG TID), (DF), (12.5 MG TID)
     Dates: start: 20071101
  2. TRAZODONE HCL [Concomitant]
  3. MECLIZINE /00072801/ [Concomitant]
  4. NITROGLYCERIN [Concomitant]
  5. COREG [Concomitant]
  6. CYMBALTA [Concomitant]
  7. ASPIRIN [Concomitant]
  8. ZETIA [Concomitant]
  9. FUROSEMIDE [Concomitant]
  10. PLAVIX [Concomitant]
  11. PROTONIX /01263201/ [Concomitant]
  12. LODRANE [Concomitant]
  13. LEVOTHROID [Concomitant]
  14. CALCITRIOL [Concomitant]
  15. LANTUS [Concomitant]
  16. HUMALOG [Concomitant]
  17. LIPITOR [Concomitant]

REACTIONS (2)
  - PARANOIA [None]
  - SOMNOLENCE [None]
